FAERS Safety Report 8362556-6 (Version None)
Quarter: 2012Q2

REPORT INFORMATION
  Report Type: 
  Country: None (occurrence: None)
  Receive Date: 20120514
  Receipt Date: 20120427
  Transmission Date: 20120825
  Serious: Yes (Death, Other)
  Sender: FDA-Public Use
  Company Number: ENTC2012-0180

PATIENT
  Age: 60 Year
  Sex: Male

DRUGS (1)
  1. STALEVO 100 [Suspect]
     Indication: PARKINSON'S DISEASE
     Dosage: 50/12.5/200 MG PER DAY
     Dates: start: 20090714, end: 20100201

REACTIONS (1)
  - PNEUMONIA [None]
